FAERS Safety Report 7681466-0 (Version None)
Quarter: 2011Q3

REPORT INFORMATION
  Report Type: 
  Country: None (occurrence: None)
  Receive Date: 20110812
  Receipt Date: 20110223
  Transmission Date: 20111222
  Serious: Yes (Death)
  Sender: FDA-Public Use
  Company Number: PHHY2011DK72005

PATIENT

DRUGS (1)
  1. FLUOXETINE [Suspect]

REACTIONS (2)
  - DEATH [None]
  - EXPOSURE DURING BREAST FEEDING [None]
